FAERS Safety Report 8894217 (Version 3)
Quarter: 2012Q4

REPORT INFORMATION
  Report Type: 
  Country: AR (occurrence: AR)
  Receive Date: 20121108
  Receipt Date: 20121228
  Transmission Date: 20130627
  Serious: Yes (Hospitalization)
  Sender: FDA-Public Use
  Company Number: AR-RANBAXY-2012RR-61822

PATIENT
  Age: 57 Year
  Sex: Male

DRUGS (6)
  1. FENOFIBRATE [Suspect]
     Indication: BLOOD TRIGLYCERIDES INCREASED
     Dosage: 200 mg, daily
     Route: 065
  2. MYCOPHENOLATE MOFETIL [Interacting]
     Indication: IMMUNOSUPPRESSION
     Dosage: 500 mg, tid
     Route: 065
  3. MYCOPHENOLATE MOFETIL [Concomitant]
     Indication: IMMUNOSUPPRESSION
     Dosage: UNK
     Route: 065
  4. MEPREDNISONE [Concomitant]
     Indication: IMMUNOSUPPRESSION
     Dosage: 4 mg/day
     Route: 065
  5. LOSARTAN [Concomitant]
     Indication: HYPERTENSION
     Dosage: 50 mg/day
     Route: 065
  6. INEGY [Concomitant]
     Indication: DYSLIPIDAEMIA
     Dosage: 10/20 mg
     Route: 065

REACTIONS (2)
  - Febrile neutropenia [Recovered/Resolved]
  - Drug interaction [Recovered/Resolved]
